FAERS Safety Report 4935738-0 (Version None)
Quarter: 2006Q1

REPORT INFORMATION
  Report Type: 
  Country: None (occurrence: None)
  Receive Date: 20060307
  Receipt Date: 20051121
  Transmission Date: 20060701
  Serious: No
  Sender: FDA-Public Use
  Company Number: US-GLAXOSMITHKLINE-A0583490A

PATIENT
  Age: 57 Year
  Sex: Female
  Weight: 86.4 kg

DRUGS (21)
  1. REQUIP [Suspect]
     Indication: RESTLESS LEGS SYNDROME
     Dosage: .5MG PER DAY
     Route: 048
  2. BENADRYL [Concomitant]
  3. MELATONIN [Concomitant]
     Indication: SLEEP DISORDER
  4. ACIPHEX [Concomitant]
  5. ANTIVERT [Concomitant]
  6. CELEBREX [Concomitant]
  7. CELEXA [Concomitant]
  8. LIPITOR [Concomitant]
  9. PREMARIN [Concomitant]
  10. TYLENOL (CAPLET) [Concomitant]
  11. ASPIRIN [Concomitant]
  12. CALCIUM GLUCONATE [Concomitant]
  13. GARLIC [Concomitant]
  14. LUTEIN [Concomitant]
  15. MULTI-VITAMIN [Concomitant]
  16. L-LYSINE [Concomitant]
  17. LECITHIN [Concomitant]
  18. ZINC [Concomitant]
  19. ASCORBIC ACID [Concomitant]
  20. VITAMIN E [Concomitant]
  21. GLUCOSAMINE CHONDROITIN [Concomitant]

REACTIONS (2)
  - HANGOVER [None]
  - MIGRAINE [None]
